FAERS Safety Report 21019834 (Version 1)
Quarter: 2022Q2

REPORT INFORMATION
  Report Type: Report from Study
  Country: US (occurrence: US)
  Receive Date: 20220628
  Receipt Date: 20220628
  Transmission Date: 20220720
  Serious: Yes (Other)
  Sender: FDA-Public Use
  Company Number: US-JAZZ-2022-US-008985

PATIENT
  Age: 52 Year
  Sex: Male

DRUGS (1)
  1. XYWAV [Suspect]
     Active Substance: CALCIUM OXYBATE\MAGNESIUM OXYBATE\POTASSIUM OXYBATE\SODIUM OXYBATE
     Indication: Hypersomnia
     Dosage: 3 GRAM AT BEDTIME
     Route: 048
     Dates: start: 202203

REACTIONS (7)
  - Respiratory depression [Unknown]
  - Micturition urgency [Unknown]
  - Heart rate abnormal [Unknown]
  - Anxiety [Unknown]
  - Hallucination [Unknown]
  - Feeling abnormal [Unknown]
  - Disorientation [Unknown]

NARRATIVE: CASE EVENT DATE: 20220301
